FAERS Safety Report 5042048-2 (Version None)
Quarter: 2006Q2

REPORT INFORMATION
  Report Type: 
  Country: None (occurrence: None)
  Receive Date: 20060630
  Receipt Date: 20060621
  Transmission Date: 20061013
  Serious: Yes (Other)
  Sender: FDA-Public Use
  Company Number: T200600679

PATIENT
  Age: 63 Year
  Sex: Female

DRUGS (1)
  1. METHYLIN (METHYLPHENIDATE HCL) TABLET, 10 MG [Suspect]
     Indication: PSYCHOMOTOR HYPERACTIVITY
     Dosage: 10 MG ORAL
     Route: 048

REACTIONS (9)
  - ANTEROGRADE AMNESIA [None]
  - C-REACTIVE PROTEIN INCREASED [None]
  - CEREBRAL ARTERY STENOSIS [None]
  - DYSLEXIA [None]
  - HEMIANOPIA [None]
  - ISCHAEMIC CEREBRAL INFARCTION [None]
  - PARAESTHESIA [None]
  - REFUSAL OF TREATMENT BY PATIENT [None]
  - VASCULITIS CEREBRAL [None]
